FAERS Safety Report 25445733 (Version 1)
Quarter: 2025Q2

REPORT INFORMATION
  Report Type: Report from Study
  Country: US (occurrence: US)
  Receive Date: 20250617
  Receipt Date: 20250617
  Transmission Date: 20250717
  Serious: Yes (Other)
  Sender: TEVA
  Company Number: US-TEVA-VS-3340736

PATIENT
  Age: 67 Year
  Sex: Male

DRUGS (23)
  1. AUSTEDO XR [Suspect]
     Active Substance: DEUTETRABENAZINE
     Indication: Polyneuropathy
     Dosage: TAKE 1 TABLET BY MOUTH EVERY DAY
     Route: 048
  2. BUSPIRONE [Concomitant]
     Active Substance: BUSPIRONE HYDROCHLORIDE
     Indication: Product used for unknown indication
  3. FAMOTIDINE [Concomitant]
     Active Substance: FAMOTIDINE
     Indication: Product used for unknown indication
  4. CLARITIN [Concomitant]
     Active Substance: LORATADINE
     Indication: Product used for unknown indication
  5. DICLOFENAC [Concomitant]
     Active Substance: DICLOFENAC
     Indication: Product used for unknown indication
  6. PREDNISONE [Concomitant]
     Active Substance: PREDNISONE
     Indication: Product used for unknown indication
  7. MELATONIN [Concomitant]
     Active Substance: MELATONIN
     Indication: Product used for unknown indication
  8. VITAMIN D [Concomitant]
     Active Substance: VITAMIN D NOS
     Indication: Product used for unknown indication
  9. TYLENOL [Concomitant]
     Active Substance: ACETAMINOPHEN
     Indication: Product used for unknown indication
  10. ALBUTEROL [Concomitant]
     Active Substance: ALBUTEROL
     Indication: Product used for unknown indication
  11. AZELASTINE [Concomitant]
     Active Substance: AZELASTINE
     Indication: Product used for unknown indication
  12. BACLOFEN [Concomitant]
     Active Substance: BACLOFEN
     Indication: Product used for unknown indication
  13. SPIRIVA [Concomitant]
     Active Substance: TIOTROPIUM BROMIDE MONOHYDRATE
     Indication: Product used for unknown indication
  14. SYMBICORT [Concomitant]
     Active Substance: BUDESONIDE\FORMOTEROL FUMARATE DIHYDRATE
     Indication: Product used for unknown indication
  15. TEZSPIRE [Concomitant]
     Active Substance: TEZEPELUMAB-EKKO
     Indication: Product used for unknown indication
  16. Triamcinolon [Concomitant]
     Indication: Product used for unknown indication
  17. Triamcinolon [Concomitant]
     Indication: Product used for unknown indication
  18. VITAMIN B12 [Concomitant]
     Active Substance: CYANOCOBALAMIN
     Indication: Product used for unknown indication
  19. BUPROPION [Concomitant]
     Active Substance: BUPROPION
     Indication: Product used for unknown indication
  20. FLUOXETINE [Concomitant]
     Active Substance: FLUOXETINE HYDROCHLORIDE
     Indication: Product used for unknown indication
  21. LOSARTAN [Concomitant]
     Active Substance: LOSARTAN
     Indication: Product used for unknown indication
  22. MONTELUKAST [Concomitant]
     Active Substance: MONTELUKAST
  23. TRAZODONE [Concomitant]
     Active Substance: TRAZODONE HYDROCHLORIDE
     Indication: Product used for unknown indication

REACTIONS (6)
  - Parkinson^s disease [Not Recovered/Not Resolved]
  - Product dose omission in error [Unknown]
  - Headache [Not Recovered/Not Resolved]
  - Insomnia [Not Recovered/Not Resolved]
  - Product dose omission issue [Unknown]
  - Product use in unapproved indication [Unknown]
